FAERS Safety Report 8883235 (Version 1)
Quarter: 2012Q4

REPORT INFORMATION
  Report Type: 
  Country: SG (occurrence: SG)
  Receive Date: 20121102
  Receipt Date: 20121102
  Transmission Date: 20130627
  Serious: Yes (Other)
  Sender: FDA-Public Use
  Company Number: SG-BAYER-2012-114602

PATIENT
  Age: 52 Year
  Sex: Female

DRUGS (3)
  1. ACETYLSALICYLIC ACID({=100 MG) [Suspect]
  2. PARACETAMOL [Suspect]
  3. PROCHLORPERAZINE [Suspect]

REACTIONS (1)
  - Angioedema [Unknown]
